FAERS Safety Report 5311559-4 (Version None)
Quarter: 2007Q2

REPORT INFORMATION
  Report Type: 
  Country: None (occurrence: None)
  Receive Date: 20070430
  Receipt Date: 20070426
  Transmission Date: 20071010
  Serious: Yes (Hospitalization)
  Sender: FDA-Public Use
  Company Number: CZ-GLAXOSMITHKLINE-B0468537A

PATIENT
  Age: 39 Year
  Sex: Female

DRUGS (2)
  1. ARIXTRA [Suspect]
     Route: 065
     Dates: start: 20070418
  2. LETROX [Concomitant]

REACTIONS (6)
  - DYSPNOEA [None]
  - FEELING HOT [None]
  - INJECTION SITE ERYTHEMA [None]
  - INJECTION SITE VESICLES [None]
  - RASH [None]
  - THROAT TIGHTNESS [None]
